FAERS Safety Report 16767615 (Version 1)
Quarter: 2019Q3

REPORT INFORMATION
  Report Type: Spontaneous
  Country: US (occurrence: US)
  Receive Date: 20190903
  Receipt Date: 20190903
  Transmission Date: 20191005
  Serious: Yes (Hospitalization, Other)
  Sender: FDA-Public Use
  Company Number: US-SA-2019SA239643

PATIENT
  Age: 62 Year
  Sex: Male

DRUGS (6)
  1. PREDNISONE. [Suspect]
     Active Substance: PREDNISONE
     Dosage: 30 MG, QD
  2. METHOTREXATE. [Suspect]
     Active Substance: METHOTREXATE
     Indication: MYCOBACTERIUM MARINUM INFECTION
  3. INFLIXIMAB [Suspect]
     Active Substance: INFLIXIMAB
     Indication: MYCOBACTERIUM MARINUM INFECTION
  4. PREDNISONE. [Suspect]
     Active Substance: PREDNISONE
     Indication: MYCOBACTERIUM MARINUM INFECTION
     Dosage: UNK
  5. LEFLUNOMIDE. [Suspect]
     Active Substance: LEFLUNOMIDE
     Indication: MYCOBACTERIUM MARINUM INFECTION
  6. ETANERCEPT [Suspect]
     Active Substance: ETANERCEPT
     Indication: MYCOBACTERIUM MARINUM INFECTION

REACTIONS (9)
  - Erythema [Unknown]
  - Arthritis [Unknown]
  - Mycobacterium marinum infection [Unknown]
  - Disease progression [Unknown]
  - Folliculitis [Unknown]
  - Skin plaque [Unknown]
  - Malaise [Unknown]
  - Unintentional use for unapproved indication [Unknown]
  - Oedema peripheral [Unknown]
